FAERS Safety Report 17099784 (Version 6)
Quarter: 2022Q4

REPORT INFORMATION
  Report Type: Spontaneous
  Country: US (occurrence: US)
  Receive Date: 20191202
  Receipt Date: 20221011
  Transmission Date: 20230113
  Serious: No
  Sender: FDA-Public Use
  Company Number: US-PFIZER INC-2019519975

PATIENT
  Age: 57 Year
  Sex: Female

DRUGS (9)
  1. DOCETAXEL [Suspect]
     Active Substance: DOCETAXEL
     Indication: HER2 negative breast cancer
     Dosage: 1 MG, CYCLIC (EVERY THREE WEEKS FOR 15 CYCLES)
     Dates: start: 201202, end: 201304
  2. CYMBALTA [Concomitant]
     Active Substance: DULOXETINE HYDROCHLORIDE
     Dosage: UNK
     Dates: start: 2013, end: 2015
  3. CYMBALTA [Concomitant]
     Active Substance: DULOXETINE HYDROCHLORIDE
     Dosage: UNK
     Dates: start: 2015, end: 2019
  4. ZOFRAN [Concomitant]
     Active Substance: ONDANSETRON HYDROCHLORIDE
     Dosage: UNK
     Dates: start: 201202, end: 2014
  5. CALCIUM\CHOLECALCIFEROL [Concomitant]
     Active Substance: CALCIUM\CHOLECALCIFEROL
     Dosage: UNK
     Dates: start: 2015
  6. PARAPLATIN [Concomitant]
     Active Substance: CARBOPLATIN
     Indication: Chemotherapy
     Dosage: UNK
  7. FORTEO [Concomitant]
     Active Substance: TERIPARATIDE
     Indication: Hormone therapy
     Dosage: UNK
     Dates: start: 2015, end: 2017
  8. FORTEO [Concomitant]
     Active Substance: TERIPARATIDE
     Dosage: UNK (SHOT, EACH NIGHT FOR 2 YEARS)
     Dates: start: 2014
  9. PROLIA [Concomitant]
     Active Substance: DENOSUMAB
     Indication: Hormone therapy
     Dosage: UNK (6 MONTHS TO 1 YEAR)
     Dates: start: 2014

REACTIONS (8)
  - Alopecia [Not Recovered/Not Resolved]
  - Panic attack [Unknown]
  - Depression [Unknown]
  - Anxiety [Unknown]
  - Madarosis [Not Recovered/Not Resolved]
  - Hair texture abnormal [Not Recovered/Not Resolved]
  - Hair disorder [Not Recovered/Not Resolved]
  - Hair colour changes [Not Recovered/Not Resolved]

NARRATIVE: CASE EVENT DATE: 20120101
